FAERS Safety Report 13129569 (Version 1)
Quarter: 2017Q1

REPORT INFORMATION
  Report Type: Spontaneous
  Country: US (occurrence: US)
  Receive Date: 20170119
  Receipt Date: 20170119
  Transmission Date: 20170428
  Serious: No
  Sender: FDA-Public Use
  Company Number: US-LUPIN PHARMACEUTICALS INC.-E2B_00005339

PATIENT
  Sex: Male

DRUGS (1)
  1. TRAMADOL HYDROCHLORIDE EXTENDED-RELEASE TABLETS 300 MG [Suspect]
     Active Substance: TRAMADOL HYDROCHLORIDE
     Indication: PAIN
     Route: 048
     Dates: start: 201602

REACTIONS (2)
  - No adverse event [Unknown]
  - Medication residue present [Unknown]
